FAERS Safety Report 9313134 (Version 1)
Quarter: 2013Q2

REPORT INFORMATION
  Report Type: Spontaneous
  Country: US (occurrence: US)
  Receive Date: 20130528
  Receipt Date: 20130528
  Transmission Date: 20140414
  Serious: No
  Sender: FDA-Public Use
  Company Number: US-ABBOTT-13P-163-1072444-00

PATIENT
  Age: 70 Year
  Sex: Male
  Weight: 104.42 kg

DRUGS (1)
  1. ANDROGEL [Suspect]
     Indication: BLOOD TESTOSTERONE DECREASED
     Dosage: 1.62 PERCENT DAILY
     Dates: start: 201210, end: 201211

REACTIONS (3)
  - Agitation [Recovered/Resolved]
  - Application site erythema [Recovered/Resolved]
  - Blood testosterone decreased [Unknown]
